FAERS Safety Report 12833663 (Version 2)
Quarter: 2016Q4

REPORT INFORMATION
  Report Type: Report from Study
  Country: US (occurrence: US)
  Receive Date: 20161010
  Receipt Date: 20161107
  Transmission Date: 20170207
  Serious: Yes (Other)
  Sender: FDA-Public Use
  Company Number: PHHO2016US014436

PATIENT
  Age: 26 Year
  Sex: Male
  Weight: 89.5 kg

DRUGS (3)
  1. TASIGNA [Suspect]
     Active Substance: NILOTINIB
     Indication: ACUTE MYELOID LEUKAEMIA
     Dosage: 300 MG, BID (DAYS 4-14, HELD AT DAY 10)
     Route: 048
     Dates: start: 20160606, end: 20160612
  2. CYTARABINE. [Suspect]
     Active Substance: CYTARABINE
     Indication: ACUTE MYELOID LEUKAEMIA
     Dosage: 100 MG/M2, QD (DAYS 1-7)
     Route: 042
     Dates: start: 20160603, end: 20160609
  3. DAUNORUBICIN [Suspect]
     Active Substance: DAUNORUBICIN
     Indication: ACUTE MYELOID LEUKAEMIA
     Dosage: 60 MG/M2, QD (DAYS 1-3)
     Route: 042
     Dates: start: 20160603, end: 20160605

REACTIONS (1)
  - Cholelithiasis [Recovered/Resolved]

NARRATIVE: CASE EVENT DATE: 20160822
